FAERS Safety Report 7702977-5 (Version None)
Quarter: 2011Q3

REPORT INFORMATION
  Report Type: 
  Country: None (occurrence: None)
  Receive Date: 20110823
  Receipt Date: 20110811
  Transmission Date: 20111222
  Serious: No
  Sender: FDA-Public Use
  Company Number: US-JNJFOC-20110806157

PATIENT
  Sex: Male
  Weight: 136.08 kg

DRUGS (3)
  1. INVEGA SUSTENNA [Suspect]
     Indication: PRODUCT USED FOR UNKNOWN INDICATION
     Route: 030
  2. SEROQUEL [Concomitant]
     Route: 048
  3. LITHIUM CARBONATE [Concomitant]
     Route: 048

REACTIONS (1)
  - DRUG EFFECT DECREASED [None]
